FAERS Safety Report 10643217 (Version 1)
Quarter: 2014Q4

REPORT INFORMATION
  Report Type: Spontaneous
  Country: US (occurrence: None)
  Receive Date: 20141121
  Receipt Date: 20141121
  Transmission Date: 20150529
  Serious: No
  Sender: FDA-Public Use
  Company Number: 163-10004-14064762

PATIENT
  Age: 61 Year
  Sex: Female
  Weight: 64.86 kg

DRUGS (3)
  1. OTEZLA [Suspect]
     Active Substance: APREMILAST
     Indication: PSORIATIC ARTHROPATHY
     Route: 048
     Dates: start: 20140520
  2. SPIRIVA (TIOTROPIUM BROMIDE) [Concomitant]
  3. METHOTREXATE (METHOTREXATE) [Concomitant]
     Active Substance: METHOTREXATE

REACTIONS (3)
  - Nausea [None]
  - Psoriasis [None]
  - Diarrhoea [None]

NARRATIVE: CASE EVENT DATE: 201405
